FAERS Safety Report 10227816 (Version 1)
Quarter: 2014Q2

REPORT INFORMATION
  Report Type: Other
  Country: DE (occurrence: DE)
  Receive Date: 20140610
  Receipt Date: 20140610
  Transmission Date: 20141212
  Serious: Yes (Other)
  Sender: FDA-Public Use
  Company Number: DE-SUN PHARMACEUTICAL INDUSTRIES LTD-2014SUN01289

PATIENT
  Age: 46 Year
  Sex: Female

DRUGS (4)
  1. VENLAFAXINE HYDROCHLORIDE EXTENDED- RELEASE TABS 75MG [Suspect]
     Indication: PRODUCT USED FOR UNKNOWN INDICATION
     Dosage: 75 MG, OD
     Route: 048
     Dates: start: 20130730, end: 20130805
  2. VENLAFAXINE HYDROCHLORIDE EXTENDED- RELEASE TABS 75MG [Suspect]
     Dosage: 150 MG, OD
     Route: 048
     Dates: start: 20130806, end: 20130808
  3. VENLAFAXINE HYDROCHLORIDE EXTENDED- RELEASE TABS 75MG [Suspect]
     Dosage: 225 MG, OD
     Route: 048
     Dates: start: 20130809, end: 20130810
  4. VENLAFAXINE HYDROCHLORIDE EXTENDED- RELEASE TABS 75MG [Suspect]
     Dosage: 150 MG, OD
     Route: 048
     Dates: start: 20130811

REACTIONS (1)
  - Nervous system disorder [Recovered/Resolved]
